FAERS Safety Report 9408129 (Version 3)
Quarter: 2013Q3

REPORT INFORMATION
  Report Type: Report from Study
  Country: US (occurrence: US)
  Receive Date: 20130718
  Receipt Date: 20130828
  Transmission Date: 20140515
  Serious: Yes (Hospitalization)
  Sender: FDA-Public Use
  Company Number: US-ALEXION-A201301612

PATIENT
  Age: 23 Year
  Sex: Female

DRUGS (22)
  1. ECULIZUMAB [Suspect]
     Indication: HAEMOLYTIC URAEMIC SYNDROME
     Dosage: UNK
     Route: 042
  2. VALCYTE [Concomitant]
     Dosage: 450 MG, QD
  3. ARANESP [Concomitant]
     Dosage: 100 ?G, QW
     Route: 058
  4. DIOVAN [Concomitant]
     Dosage: 160 MG, BID
  5. CLONIDINE [Concomitant]
     Dosage: 0.3 MG, TID
  6. COREG [Concomitant]
     Dosage: 25 MG, BID
  7. CARDIZEM CD [Concomitant]
     Dosage: 360 MG, QD
  8. LASIX [Concomitant]
     Dosage: 40 MG, QD
  9. HYDRALAZINE [Concomitant]
     Dosage: 50 MG, TID
  10. MINOXIDIL [Concomitant]
     Dosage: 2.5 MG, BID
  11. REGLAN [Concomitant]
     Dosage: 10 MG, Q.A.C.
     Route: 048
  12. ATIVAN [Concomitant]
     Dosage: 0.5 MG, TID
  13. AMBIEN [Concomitant]
     Dosage: 10 MG, QD NIGHTLY
  14. SODIUM BICARBONATE [Concomitant]
     Dosage: 1300 MG, TID
     Route: 048
  15. COLACE [Concomitant]
     Dosage: 100 MG, BID PRN
  16. PRILOSEC [Concomitant]
     Dosage: 20 MG, BID
  17. PREDNISONE [Concomitant]
     Dosage: 10 MG, QD
  18. CELLCEPT [Concomitant]
     Dosage: 500 MG, BID
  19. PROGRAF [Concomitant]
     Dosage: 4.5 MG, BID
  20. SENSIPAR [Concomitant]
     Dosage: 60 MG, QD
  21. VITAMIN D [Concomitant]
     Dosage: 50000 IU, QW
     Route: 048
  22. CITALOPRAM [Concomitant]
     Dosage: 20 MG, QD
     Route: 048

REACTIONS (1)
  - Gastroenteritis [Recovered/Resolved]
